FAERS Safety Report 17906201 (Version 1)
Quarter: 2020Q2

REPORT INFORMATION
  Report Type: Spontaneous
  Country: US (occurrence: US)
  Receive Date: 20200616
  Receipt Date: 20200616
  Transmission Date: 20200714
  Serious: No
  Sender: FDA-Public Use
  Company Number: US-ROCHE-2345222

PATIENT
  Sex: Male

DRUGS (15)
  1. METHYLPREDNISOLONE. [Concomitant]
     Active Substance: METHYLPREDNISOLONE
     Route: 065
  2. MELOXICAM. [Concomitant]
     Active Substance: MELOXICAM
     Route: 065
  3. POTASSIUM [Concomitant]
     Active Substance: POTASSIUM
  4. ACTEMRA [Suspect]
     Active Substance: TOCILIZUMAB
     Indication: RHEUMATOID ARTHRITIS
     Dosage: 162 MG 0.9 ML
     Route: 058
  5. FISH OIL [Concomitant]
     Active Substance: FISH OIL
     Route: 065
  6. PREDNISONE. [Concomitant]
     Active Substance: PREDNISONE
  7. FOLIC ACID. [Concomitant]
     Active Substance: FOLIC ACID
     Route: 065
  8. METHOTREXATE. [Concomitant]
     Active Substance: METHOTREXATE
  9. ALBUTEROL SULFATE. [Concomitant]
     Active Substance: ALBUTEROL SULFATE
  10. COLCRYS [Concomitant]
     Active Substance: COLCHICINE
     Route: 065
  11. LOSARTAN POTASSIUM. [Concomitant]
     Active Substance: LOSARTAN POTASSIUM
  12. ALLOPURINOL. [Concomitant]
     Active Substance: ALLOPURINOL
     Route: 065
  13. AZITHROMYCIN ANHYDROUS. [Concomitant]
     Active Substance: AZITHROMYCIN ANHYDROUS
     Route: 065
  14. BENZONATATE. [Concomitant]
     Active Substance: BENZONATATE
     Route: 065
  15. LEVOFLOX [Concomitant]
     Active Substance: LEVOFLOXACIN
     Dosage: INJECTION 75
     Route: 065

REACTIONS (1)
  - Malaise [Unknown]
